FAERS Safety Report 5622708-2 (Version None)
Quarter: 2008Q1

REPORT INFORMATION
  Report Type: 
  Country: None (occurrence: None)
  Receive Date: 20080212
  Receipt Date: 20080131
  Transmission Date: 20080703
  Serious: Yes (Hospitalization)
  Sender: FDA-Public Use
  Company Number: US-JNJFOC-20080105139

PATIENT
  Sex: Female

DRUGS (6)
  1. EXTRA STRENGTH TYLENOL [Suspect]
     Indication: ACCIDENTAL EXPOSURE
     Dosage: 10 DOSES TOTAL
     Route: 048
  2. CREON [Concomitant]
     Route: 048
  3. CYPROHEPTADINE HCL [Concomitant]
     Route: 048
  4. PRILOSEC [Concomitant]
     Route: 048
  5. CHOLECALCIFEROL [Concomitant]
     Route: 048
  6. MULTI-VITAMIN [Concomitant]
     Route: 048

REACTIONS (4)
  - ACCIDENTAL DRUG INTAKE BY CHILD [None]
  - ACCIDENTAL OVERDOSE [None]
  - BALANCE DISORDER [None]
  - HALLUCINATIONS, MIXED [None]
